FAERS Safety Report 17539327 (Version 1)
Quarter: 2020Q1

REPORT INFORMATION
  Report Type: Spontaneous
  Country: US (occurrence: US)
  Receive Date: 20200313
  Receipt Date: 20200313
  Transmission Date: 20200409
  Serious: Yes (Hospitalization)
  Sender: FDA-Public Use
  Company Number: US-TORRENT-00008540

PATIENT
  Age: 77 Year
  Sex: Female
  Weight: 74 kg

DRUGS (1)
  1. LOSARTAN POTASSIUM HYDROCHLOROTHIAZIDE TABLETS [Suspect]
     Active Substance: HYDROCHLOROTHIAZIDE\LOSARTAN POTASSIUM
     Indication: HYPERTENSION

REACTIONS (13)
  - Rhinorrhoea [Not Recovered/Not Resolved]
  - Respiratory disorder [Not Recovered/Not Resolved]
  - Oropharyngeal discomfort [Not Recovered/Not Resolved]
  - Loss of consciousness [Unknown]
  - Thyroid disorder [Unknown]
  - Macroglossia [Not Recovered/Not Resolved]
  - Dizziness [Not Recovered/Not Resolved]
  - Sinus disorder [Not Recovered/Not Resolved]
  - Ear pain [Not Recovered/Not Resolved]
  - Asthenia [Recovered/Resolved]
  - Dysphagia [Not Recovered/Not Resolved]
  - Burning sensation [Not Recovered/Not Resolved]
  - Adverse drug reaction [Unknown]

NARRATIVE: CASE EVENT DATE: 201904
